FAERS Safety Report 7945228-9 (Version None)
Quarter: 2011Q4

REPORT INFORMATION
  Report Type: 
  Country: None (occurrence: None)
  Receive Date: 20111129
  Receipt Date: 20110606
  Transmission Date: 20120403
  Serious: No
  Sender: FDA-Public Use
  Company Number: US-GLAXOSMITHKLINE-A0930397A

PATIENT
  Age: 81 Year
  Sex: Female

DRUGS (14)
  1. ARIMIDEX [Concomitant]
  2. ALLOPURINOL [Concomitant]
  3. SPIRIVA [Concomitant]
  4. METFORMIN HCL [Concomitant]
  5. FUROSEMIDE [Concomitant]
  6. UNKNOWN MEDICATION [Concomitant]
  7. FLOVENT [Suspect]
     Indication: ASTHMA
     Dosage: 1PUFF TWICE PER DAY
     Route: 055
     Dates: start: 20110501
  8. DILTIAZEM HCL [Concomitant]
  9. INSULIN [Concomitant]
  10. LISINOPRIL [Concomitant]
  11. VITAMIN TAB [Concomitant]
  12. OMEPRAZOLE [Concomitant]
  13. ALENDRONATE SODIUM [Concomitant]
  14. LEVOTHYROXINE SODIUM [Concomitant]

REACTIONS (5)
  - HYPOACUSIS [None]
  - NASAL CONGESTION [None]
  - PARANASAL SINUS HYPERSECRETION [None]
  - CERUMEN IMPACTION [None]
  - HYPERSENSITIVITY [None]
